FAERS Safety Report 5528716-4 (Version None)
Quarter: 2007Q4

REPORT INFORMATION
  Report Type: 
  Country: None (occurrence: None)
  Receive Date: 20071129
  Receipt Date: 20071109
  Transmission Date: 20080405
  Serious: No
  Sender: FDA-Public Use
  Company Number: US-JNJFOC-20071103818

PATIENT
  Sex: Male
  Weight: 24.04 kg

DRUGS (3)
  1. INVEGA [Suspect]
     Indication: ATTENTION DEFICIT/HYPERACTIVITY DISORDER
     Route: 048
  2. CALIN [Concomitant]
  3. PROZAC [Concomitant]

REACTIONS (1)
  - HYPERSOMNIA [None]
